FAERS Safety Report 9168135 (Version 2)
Quarter: 2013Q3

REPORT INFORMATION
  Report Type: Spontaneous
  Country: US (occurrence: None)
  Receive Date: 20130313
  Receipt Date: 20130918
  Transmission Date: 20140515
  Serious: Yes (Death)
  Sender: FDA-Public Use
  Company Number: 2013US001232

PATIENT
  Age: 70 Year
  Sex: Female

DRUGS (6)
  1. ICLUSIG [Suspect]
     Route: 048
     Dates: start: 20130117, end: 20130224
  2. NEULASTA (PEGFILGRASTIM) [Concomitant]
  3. PREDNISONE [Concomitant]
  4. PANTOPRAZOLE [Concomitant]
  5. ZOCOR (SIMVASTATIN) [Concomitant]
  6. FOSAMAX (ALENDRONATE SODIUM) [Concomitant]

REACTIONS (1)
  - Death [None]
